FAERS Safety Report 13622169 (Version 1)
Quarter: 2017Q2

REPORT INFORMATION
  Report Type: Spontaneous
  Country: US (occurrence: US)
  Receive Date: 20170607
  Receipt Date: 20170607
  Transmission Date: 20170830
  Serious: No
  Sender: FDA-Public Use
  Company Number: US-ROCHE-765382

PATIENT
  Sex: Female

DRUGS (2)
  1. ATIVAN [Concomitant]
     Active Substance: LORAZEPAM
     Dosage: ATIVAN OVERDOSAGE.
     Route: 065
  2. ROMAZICON [Suspect]
     Active Substance: FLUMAZENIL
     Indication: OVERDOSE
     Dosage: UPTO 5MG
     Route: 065

REACTIONS (2)
  - Therapy non-responder [Unknown]
  - No adverse event [Unknown]
